FAERS Safety Report 7117361-5 (Version None)
Quarter: 2010Q4

REPORT INFORMATION
  Report Type: 
  Country: None (occurrence: None)
  Receive Date: 20101122
  Receipt Date: 20100913
  Transmission Date: 20110411
  Serious: Yes (Other)
  Sender: FDA-Public Use
  Company Number: JP-PFIZER INC-2010138074

PATIENT
  Age: 69 Year
  Sex: Female

DRUGS (1)
  1. SEIBULE [Suspect]
     Indication: DIABETES MELLITUS
     Dosage: 150 MG/DAY
     Route: 048
     Dates: start: 20100216, end: 20100312

REACTIONS (1)
  - HEPATIC FUNCTION ABNORMAL [None]
